FAERS Safety Report 17558506 (Version 1)
Quarter: 2020Q1

REPORT INFORMATION
  Report Type: Spontaneous
  Country: US (occurrence: US)
  Receive Date: 20200319
  Receipt Date: 20200319
  Transmission Date: 20200409
  Serious: Yes (Hospitalization, Other)
  Sender: FDA-Public Use
  Company Number: US-ALVOGEN-2020-ALVOGEN-107798

PATIENT
  Age: 59 Year
  Sex: Male

DRUGS (1)
  1. GRALISE [Suspect]
     Active Substance: GABAPENTIN
     Indication: PAIN
     Dosage: 3 TABLETS BY MOUTH ONCE DAILY
     Route: 048

REACTIONS (1)
  - Prostate infection [Unknown]

NARRATIVE: CASE EVENT DATE: 20200205
